FAERS Safety Report 8552456-0 (Version None)
Quarter: 2012Q3

REPORT INFORMATION
  Report Type: 
  Country: None (occurrence: None)
  Receive Date: 20120719
  Receipt Date: 20120713
  Transmission Date: 20120928
  Serious: Yes (Other)
  Sender: FDA-Public Use
  Company Number: 2012031823

PATIENT
  Age: 71 Year
  Sex: Female
  Weight: 78.4723 kg

DRUGS (21)
  1. CARDIZEM [Concomitant]
  2. FOLIC ACID [Concomitant]
  3. ISOSORBIDE DINITRATE [Concomitant]
  4. NEURONTIN [Concomitant]
  5. MULTIVITAMIN (DAILY MULTIVITAMIN) [Concomitant]
  6. CALCIUM CARBONATE [Concomitant]
  7. MUPIROCIN [Concomitant]
  8. LORAZEPAM [Concomitant]
  9. LIDOCAINE /PRILOCAINE (EMLA/00675501/ [Concomitant]
  10. SINGULAIR [Concomitant]
  11. LOSARTAN POTASSIUM [Concomitant]
  12. HIZENTRA [Suspect]
     Indication: IMMUNODEFICIENCY COMMON VARIABLE
     Dosage: 8 G 1XWEEK, IN 2-3 SITES OVER 1-2 HOURS SUBCUTANEOUS
     Route: 058
     Dates: start: 20120712, end: 20120712
  13. HIZENTRA [Suspect]
     Indication: IMMUNODEFICIENCY COMMON VARIABLE
     Dosage: 8 G 1XWEEK, IN 2-3 SITES OVER 1-2 HOURS SUBCUTANEOUS
     Route: 058
     Dates: start: 20120217
  14. ACETAMINOPHEN [Concomitant]
  15. DIPHENHYDRAMINE HCL [Concomitant]
  16. LASIX [Concomitant]
  17. EPIPEN [Concomitant]
  18. HIZENTRA [Suspect]
  19. OXYGEN (OXYGEN) [Concomitant]
  20. POTASSIUM (POTASSIUM) [Concomitant]
  21. HYDROXYZINE [Concomitant]

REACTIONS (3)
  - PRURITUS [None]
  - RASH ERYTHEMATOUS [None]
  - RESPIRATORY TRACT INFECTION [None]
